FAERS Safety Report 24060044 (Version 1)
Quarter: 2024Q3

REPORT INFORMATION
  Report Type: Spontaneous
  Country: US (occurrence: US)
  Receive Date: 20240708
  Receipt Date: 20240708
  Transmission Date: 20241016
  Serious: No
  Sender: JOHNSON AND JOHNSON
  Company Number: US-JNJFOC-20240669871

PATIENT
  Sex: Female

DRUGS (3)
  1. TYLENOL [Suspect]
     Active Substance: ACETAMINOPHEN
     Indication: Migraine
     Route: 065
  2. GABAPENTIN [Concomitant]
     Active Substance: GABAPENTIN
     Indication: Migraine prophylaxis
     Route: 065
     Dates: start: 202110
  3. CAFFEINE [Concomitant]
     Active Substance: CAFFEINE
     Indication: Migraine
     Route: 065

REACTIONS (1)
  - Exposure during pregnancy [Unknown]
